FAERS Safety Report 15306302 (Version 1)
Quarter: 2018Q3

REPORT INFORMATION
  Report Type: Report from Study
  Country: US (occurrence: US)
  Receive Date: 20180822
  Receipt Date: 20180822
  Transmission Date: 20181010
  Serious: Yes (Death)
  Sender: FDA-Public Use
  Company Number: US-ROCHE-2166378

PATIENT
  Age: 45 Year
  Sex: Female

DRUGS (3)
  1. AVASTIN [Suspect]
     Active Substance: BEVACIZUMAB
     Indication: METASTASES TO LUNG
  2. AVASTIN [Suspect]
     Active Substance: BEVACIZUMAB
     Indication: COLON CANCER
     Route: 065
  3. AVASTIN [Suspect]
     Active Substance: BEVACIZUMAB
     Indication: VITAMIN D DEFICIENCY

REACTIONS (1)
  - Death [Fatal]

NARRATIVE: CASE EVENT DATE: 20180701
